FAERS Safety Report 7030714-9 (Version None)
Quarter: 2010Q4

REPORT INFORMATION
  Report Type: 
  Country: None (occurrence: None)
  Receive Date: 20101001
  Receipt Date: 20100921
  Transmission Date: 20110411
  Serious: Yes (Other)
  Sender: FDA-Public Use
  Company Number: US-001303

PATIENT
  Age: 24 Month
  Sex: Female

DRUGS (1)
  1. KUVAN [Suspect]
     Indication: PHENYLKETONURIA
     Dosage: (300 MG QD ORAL)
     Route: 048
     Dates: start: 20090101

REACTIONS (1)
  - GASTRIC ULCER [None]
